FAERS Safety Report 12782382 (Version 2)
Quarter: 2016Q4

REPORT INFORMATION
  Report Type: Spontaneous
  Country: US (occurrence: US)
  Receive Date: 20160927
  Receipt Date: 20161004
  Transmission Date: 20170207
  Serious: Yes (Other)
  Sender: FDA-Public Use
  Company Number: US-ASTRAZENECA-2016SF01403

PATIENT
  Sex: Female

DRUGS (2)
  1. VICTOZA [Suspect]
     Active Substance: LIRAGLUTIDE
     Dosage: UNKNOWN
     Route: 065
  2. BYETTA [Suspect]
     Active Substance: EXENATIDE
     Route: 065

REACTIONS (3)
  - Blood glucose increased [Unknown]
  - Dehydration [Unknown]
  - Vomiting projectile [Unknown]

NARRATIVE: CASE EVENT DATE: 2008
